FAERS Safety Report 5379857-6 (Version None)
Quarter: 2007Q3

REPORT INFORMATION
  Report Type: 
  Country: None (occurrence: None)
  Receive Date: 20070706
  Receipt Date: 20070627
  Transmission Date: 20080115
  Serious: Yes (Other)
  Sender: FDA-Public Use
  Company Number: ES-JNJFOC-20070202440

PATIENT
  Sex: Male

DRUGS (3)
  1. REMICADE [Suspect]
     Route: 042
  2. REMICADE [Suspect]
     Indication: CROHN'S DISEASE
     Dosage: 4 INFUSIONS ADMINISTERED.  EVENTS OCCURRED FOLLOWING 2ND, 3RD AND 4TH INFUSIONS.
     Route: 042
  3. AZATHIOPRINE SODIUM [Concomitant]
     Route: 065

REACTIONS (2)
  - ECZEMA [None]
  - RASH [None]
